FAERS Safety Report 15428144 (Version 1)
Quarter: 2018Q3

REPORT INFORMATION
  Report Type: Report from Study
  Country: JP (occurrence: JP)
  Receive Date: 20180926
  Receipt Date: 20180926
  Transmission Date: 20181010
  Serious: Yes (Other)
  Sender: FDA-Public Use
  Company Number: JP-CONCORDIA PHARMACEUTICALS INC.-GSH201809-003388

PATIENT
  Age: 71 Year
  Sex: Female
  Weight: 46 kg

DRUGS (3)
  1. ANTEBATE [Concomitant]
     Active Substance: BETAMETHASONE DIPROPIONATE
     Indication: CHRONIC CUTANEOUS LUPUS ERYTHEMATOSUS
  2. LIDOMEX [Concomitant]
     Active Substance: PREDNISOLONE VALERATE ACETATE
     Indication: PRODUCT USED FOR UNKNOWN INDICATION
  3. PLAQUENIL [Suspect]
     Active Substance: HYDROXYCHLOROQUINE SULFATE
     Indication: CHRONIC CUTANEOUS LUPUS ERYTHEMATOSUS
     Route: 048
     Dates: start: 20170323, end: 20170913

REACTIONS (1)
  - Spinal compression fracture [Recovering/Resolving]

NARRATIVE: CASE EVENT DATE: 201705
